FAERS Safety Report 19908234 (Version 2)
Quarter: 2021Q4

REPORT INFORMATION
  Report Type: Spontaneous
  Country: BY (occurrence: BY)
  Receive Date: 20211001
  Receipt Date: 20211026
  Transmission Date: 20220304
  Serious: Yes (Hospitalization, Other)
  Sender: FDA-Public Use
  Company Number: BY-BAYER-2021A216841

PATIENT
  Sex: Male

DRUGS (7)
  1. LORATADINE [Suspect]
     Active Substance: LORATADINE
     Indication: Progressive familial intrahepatic cholestasis
  2. VICASOL [ASCORBIC ACID;ERGOCALCIFEROL;RETINOL] [Concomitant]
  3. OMEPRAZOLE [Concomitant]
     Active Substance: OMEPRAZOLE
  4. PREDNISOLONE [Concomitant]
     Active Substance: PREDNISOLONE
  5. URSOCAPS [Concomitant]
  6. LACTULOSE [Concomitant]
     Active Substance: LACTULOSE
  7. PHENOBARBITAL [Concomitant]
     Active Substance: PHENOBARBITAL
     Dosage: 100 MG, QD

REACTIONS (4)
  - Hepatorenal syndrome [None]
  - Acute kidney injury [None]
  - Off label use [None]
  - COVID-19 [None]
